FAERS Safety Report 17835668 (Version 2)
Quarter: 2020Q2

REPORT INFORMATION
  Report Type: Spontaneous
  Country: BR (occurrence: BR)
  Receive Date: 20200528
  Receipt Date: 20200528
  Transmission Date: 20200714
  Serious: Yes (Other)
  Sender: FDA-Public Use
  Company Number: BR-AMGEN-BRASP2020080072

PATIENT
  Age: 50 Year
  Sex: Male
  Weight: 116 kg

DRUGS (1)
  1. ENBREL [Suspect]
     Active Substance: ETANERCEPT
     Indication: RHEUMATOID ARTHRITIS
     Dosage: ONE SYRINGE , WEEKLY
     Route: 065
     Dates: start: 20150630, end: 2018

REACTIONS (5)
  - Pruritus [Not Recovered/Not Resolved]
  - Neoplasm [Not Recovered/Not Resolved]
  - Haemorrhage [Not Recovered/Not Resolved]
  - Furuncle [Not Recovered/Not Resolved]
  - Skin infection [Not Recovered/Not Resolved]
